FAERS Safety Report 7628379-8 (Version None)
Quarter: 2011Q3

REPORT INFORMATION
  Report Type: 
  Country: None (occurrence: None)
  Receive Date: 20110722
  Receipt Date: 20110718
  Transmission Date: 20111222
  Serious: No
  Sender: FDA-Public Use
  Company Number: US-PFIZER INC-2011154617

PATIENT
  Sex: Male
  Weight: 72.6 kg

DRUGS (4)
  1. DEPO-TESTOSTERONE [Suspect]
     Indication: HYPOGONADISM
  2. SYNTHROID [Concomitant]
     Indication: THYROID DISORDER
  3. DEPO-TESTOSTERONE [Suspect]
     Indication: BLOOD TESTOSTERONE DECREASED
     Dosage: 200 MG, UNK
     Route: 030
     Dates: start: 20110614
  4. SYNTHROID [Concomitant]
     Indication: HYPOTHYROIDISM
     Dosage: UNK

REACTIONS (3)
  - INCREASED APPETITE [None]
  - SLEEP DISORDER [None]
  - DRUG EFFECT DECREASED [None]
